FAERS Safety Report 9265166 (Version 1)
Quarter: 2013Q2

REPORT INFORMATION
  Report Type: Spontaneous
  Country: CZ (occurrence: None)
  Receive Date: 20130429
  Receipt Date: 20130429
  Transmission Date: 20140414
  Serious: Yes (Hospitalization, Other)
  Sender: FDA-Public Use
  Company Number: SYM-2013-03172

PATIENT
  Sex: 0

DRUGS (3)
  1. FLUOROURACIL (FLUOROURACIL) (FLUOROURACIL) [Suspect]
     Indication: COLORECTAL CANCER METASTATIC
     Route: 013
  2. OXALIPLATIN (OXALIPLATIN) (OXALIPLATIN) [Suspect]
     Route: 013
  3. LEUCOVORIN (FOLINIC ACID) (FOLINIC ACID) [Suspect]
     Dosage: 50 - 100 MG, INTRA-ARTERIAL
     Route: 013

REACTIONS (3)
  - Sepsis [None]
  - Diarrhoea [None]
  - Dehydration [None]
